FAERS Safety Report 7985439-X (Version None)
Quarter: 2011Q4

REPORT INFORMATION
  Report Type: 
  Country: None (occurrence: None)
  Receive Date: 20111216
  Receipt Date: 20111205
  Transmission Date: 20120403
  Serious: Yes (Disabling, Congenital Anomaly)
  Sender: FDA-Public Use
  Company Number: JP-SANOFI-AVENTIS-2011SA076547

PATIENT
  Sex: Male
  Weight: 2.57 kg

DRUGS (8)
  1. SERTRALINE HYDROCHLORIDE [Suspect]
     Route: 064
  2. LUDIOMIL [Suspect]
     Route: 064
  3. ZOLPIDEM [Suspect]
     Route: 064
  4. FLUVOXAMINE MALEATE [Suspect]
     Route: 064
  5. DORAL [Suspect]
     Route: 064
  6. ZYPREXA [Suspect]
     Route: 064
  7. NITRAZEPAM [Suspect]
     Route: 064
  8. SILECE [Suspect]
     Route: 064

REACTIONS (1)
  - FINGER HYPOPLASIA [None]
